FAERS Safety Report 4796868-X (Version None)
Quarter: 2005Q3

REPORT INFORMATION
  Report Type: 
  Country: None (occurrence: None)
  Receive Date: 20050916
  Receipt Date: 20050506
  Transmission Date: 20060218
  Serious: Yes (Other)
  Sender: FDA-Public Use
  Company Number: US-JNJFOC-20050200609

PATIENT
  Age: 19 Year
  Sex: Female
  Weight: 61.2356 kg

DRUGS (1)
  1. TOPAMAX [Suspect]
     Indication: MIGRAINE
     Dosage: 100 MG,  IN 1 DAY, ORAL
     Route: 048
     Dates: start: 20040701, end: 20040801

REACTIONS (6)
  - AGGRESSION [None]
  - BLOOD GLUCOSE INCREASED [None]
  - CARBON DIOXIDE INCREASED [None]
  - DISSOCIATION [None]
  - URINE KETONE BODY PRESENT [None]
  - WEIGHT DECREASED [None]
